FAERS Safety Report 24709766 (Version 3)
Quarter: 2025Q1

REPORT INFORMATION
  Report Type: Spontaneous
  Country: US (occurrence: US)
  Receive Date: 20241209
  Receipt Date: 20250210
  Transmission Date: 20250409
  Serious: Yes (Other)
  Sender: UNKNOWN
  Company Number: US-STALCOR-2024-AER-02771

PATIENT
  Sex: Male

DRUGS (1)
  1. PALFORZIA [Suspect]
     Active Substance: PEANUT
     Indication: Food allergy
     Dosage: 300MG: MIX CONTENTS OF 1 SACHET WELL WITH SEMISOLID FOOD AS DIRECTED AND CONSUME ONCE DAILY AT APPRO
     Route: 048

REACTIONS (3)
  - Atypical pneumonia [Not Recovered/Not Resolved]
  - Nasopharyngitis [Unknown]
  - Product dose omission issue [Unknown]
